FAERS Safety Report 16572896 (Version 1)
Quarter: 2019Q3

REPORT INFORMATION
  Report Type: Spontaneous
  Country: DE (occurrence: DE)
  Receive Date: 20190715
  Receipt Date: 20190715
  Transmission Date: 20191004
  Serious: Yes (Hospitalization)
  Sender: FDA-Public Use
  Company Number: DE-TEVA-2019-DE-1075823

PATIENT
  Age: 61 Year
  Sex: Male

DRUGS (13)
  1. RAMIPRIL. [Concomitant]
     Active Substance: RAMIPRIL
     Dosage: 5 MG, 1-0-0.5-0
  2. OMEPRAZOL [Concomitant]
     Active Substance: OMEPRAZOLE
     Dosage: 40 MG, 1-0-0-0
  3. ACETYLSALICYLS?URE [Concomitant]
     Active Substance: ASPIRIN
     Dosage: 100 MG, 1-0-1-0
  4. SIMVASTATIN. [Concomitant]
     Active Substance: SIMVASTATIN
     Dosage: 40 MG, 0-0-1-0
  5. ALLOPURINOL. [Concomitant]
     Active Substance: ALLOPURINOL
     Dosage: 100 MG, 1-0-0-0
  6. FOLS?URE [Concomitant]
     Dosage: 5 MG, 1-0-0-0
  7. NEUROTRAT S FORTE [Concomitant]
     Dosage: NK MG, 1-0-1-0
  8. INNOHEP 20000 ANTI-XAI.E./ML [Concomitant]
     Dosage: 20000 IE, NK
  9. TRAMADOL. [Concomitant]
     Active Substance: TRAMADOL
     Dosage: NK MG, BEDARF
  10. IVABRADIN [Concomitant]
     Active Substance: IVABRADINE
     Dosage: 5 MG, 1-0-0.5-0
  11. CARBOPLATIN. [Suspect]
     Active Substance: CARBOPLATIN
     Dosage: NK MG, NK
     Route: 065
  12. METOPROLOL. [Concomitant]
     Active Substance: METOPROLOL
     Dosage: 47.5 MG, 1-0-1-90
  13. PACLITAXEL. [Suspect]
     Active Substance: PACLITAXEL
     Dosage: NK MG, NK
     Route: 065

REACTIONS (5)
  - Dyspnoea [Unknown]
  - General physical health deterioration [Unknown]
  - Cough [Unknown]
  - Dizziness [Unknown]
  - Circulatory collapse [Unknown]
